FAERS Safety Report 7304169-0 (Version None)
Quarter: 2011Q1

REPORT INFORMATION
  Report Type: 
  Country: None (occurrence: None)
  Receive Date: 20110221
  Receipt Date: 20101019
  Transmission Date: 20110831
  Serious: Yes (Other)
  Sender: FDA-Public Use
  Company Number: US-BAYER-201017057NA

PATIENT
  Sex: Female
  Weight: 59.091 kg

DRUGS (6)
  1. COLACE [Concomitant]
  2. ANTIDEPRESSANTS [Concomitant]
  3. YAZ [Suspect]
     Indication: ORAL CONTRACEPTION
     Dosage: UNK UNK, UNK
     Route: 048
     Dates: end: 20081007
  4. YASMIN [Suspect]
     Indication: ORAL CONTRACEPTION
     Dosage: DAILY DOSE 1 DF
     Route: 048
     Dates: start: 20080301, end: 20081007
  5. AMBIEN [Concomitant]
     Indication: SLEEP DISORDER
  6. DURATUSS [Concomitant]
     Indication: PRODUCT USED FOR UNKNOWN INDICATION
     Dates: start: 20080701

REACTIONS (7)
  - PAIN [None]
  - ABDOMINAL PAIN [None]
  - PAIN IN EXTREMITY [None]
  - DYSPNOEA [None]
  - DEEP VEIN THROMBOSIS [None]
  - CHOLELITHIASIS [None]
  - MYALGIA [None]
